FAERS Safety Report 5159575-X (Version None)
Quarter: 2006Q4

REPORT INFORMATION
  Report Type: 
  Country: None (occurrence: None)
  Receive Date: 20061120
  Receipt Date: 20061110
  Transmission Date: 20070319
  Serious: Yes (Hospitalization)
  Sender: FDA-Public Use
  Company Number: 002#8#2006-00324

PATIENT
  Age: 77 Year
  Sex: Male

DRUGS (3)
  1. COLYTE [Suspect]
     Indication: COLONOSCOPY
     Dosage: 4L, ONCE
  2. COLYTE [Suspect]
     Indication: PREOPERATIVE CARE
     Dosage: 4L, ONCE
  3. LAXATIVES [Concomitant]

REACTIONS (15)
  - ASCITES [None]
  - BLOOD ALBUMIN DECREASED [None]
  - BLOOD CREATININE INCREASED [None]
  - BLOOD POTASSIUM DECREASED [None]
  - BLOOD PRESSURE SYSTOLIC INCREASED [None]
  - BODY TEMPERATURE INCREASED [None]
  - COLONIC OBSTRUCTION [None]
  - HAEMATOCRIT DECREASED [None]
  - HAEMOGLOBIN DECREASED [None]
  - INTESTINAL GANGRENE [None]
  - PLATELET COUNT DECREASED [None]
  - PROTEIN TOTAL DECREASED [None]
  - RESPIRATORY RATE INCREASED [None]
  - VOLVULUS [None]
  - WHITE BLOOD CELL COUNT DECREASED [None]
